FAERS Safety Report 4941729-6 (Version None)
Quarter: 2006Q1

REPORT INFORMATION
  Report Type: 
  Country: None (occurrence: None)
  Receive Date: 20060308
  Receipt Date: 20060223
  Transmission Date: 20060701
  Serious: Yes (Other)
  Sender: FDA-Public Use
  Company Number: 2006027370

PATIENT
  Age: 2 Year
  Sex: Male

DRUGS (1)
  1. ZYVOX [Suspect]
     Indication: URINARY TRACT INFECTION ENTEROCOCCAL
     Dosage: 30 MG/KG (10 MG/KG, 1 IN 8 HR)

REACTIONS (1)
  - HEART RATE INCREASED [None]
